FAERS Safety Report 10449757 (Version 1)
Quarter: 2014Q3

REPORT INFORMATION
  Report Type: Other
  Country: US (occurrence: US)
  Receive Date: 20140912
  Receipt Date: 20140912
  Transmission Date: 20150326
  Serious: Yes (Other)
  Sender: FDA-Public Use
  Company Number: US-INCYTE CORPORATION-2014IN001983

PATIENT
  Age: 74 Year
  Sex: Male

DRUGS (1)
  1. JAKAFI [Suspect]
     Active Substance: RUXOLITINIB
     Indication: LYMPHATIC DISORDER
     Dosage: 20 MG, BID
     Route: 048
     Dates: start: 20131115

REACTIONS (1)
  - Haemoglobin decreased [Recovered/Resolved]
